FAERS Safety Report 7142602-8 (Version None)
Quarter: 2010Q4

REPORT INFORMATION
  Report Type: 
  Country: None (occurrence: None)
  Receive Date: 20101112
  Receipt Date: 20101006
  Transmission Date: 20110411
  Serious: No
  Sender: FDA-Public Use
  Company Number: 1000016660

PATIENT
  Age: 62 Year
  Sex: Female

DRUGS (12)
  1. SAVELLA [Suspect]
     Indication: FIBROMYALGIA
     Dosage: 12.5 (12.5 MG, 1 IN 1 D), ORAL; 25 MG (12.5 MG, 2 IN 1 D{ ORAL; 50 MG (25 MG, 2 IN 1 D), ORAL
     Route: 048
     Dates: start: 20100701, end: 20100701
  2. SAVELLA [Suspect]
     Indication: FIBROMYALGIA
     Dosage: 12.5 (12.5 MG, 1 IN 1 D), ORAL; 25 MG (12.5 MG, 2 IN 1 D{ ORAL; 50 MG (25 MG, 2 IN 1 D), ORAL
     Route: 048
     Dates: start: 20100701, end: 20100701
  3. SAVELLA [Suspect]
     Indication: FIBROMYALGIA
     Dosage: 12.5 (12.5 MG, 1 IN 1 D), ORAL; 25 MG (12.5 MG, 2 IN 1 D{ ORAL; 50 MG (25 MG, 2 IN 1 D), ORAL
     Route: 048
     Dates: start: 20100701, end: 20100701
  4. SAVELLA [Suspect]
     Indication: FIBROMYALGIA
     Dosage: SEE IMAGE; ORAL
     Route: 048
     Dates: start: 20100701, end: 20100701
  5. SAVELLA [Suspect]
     Indication: FIBROMYALGIA
     Dosage: SEE IMAGE; ORAL
     Route: 048
     Dates: start: 20100901, end: 20100901
  6. SAVELLA [Suspect]
     Indication: FIBROMYALGIA
     Dosage: SEE IMAGE; ORAL
     Route: 048
     Dates: start: 20100901, end: 20100901
  7. SAVELLA [Suspect]
     Indication: FIBROMYALGIA
     Dosage: SEE IMAGE; ORAL
     Route: 048
     Dates: start: 20100901, end: 20100901
  8. SAVELLA [Suspect]
     Indication: FIBROMYALGIA
     Dosage: 100 MG (50 MG, 2 IN 1 D), ORAL
     Route: 048
     Dates: start: 20100901, end: 20100914
  9. LIPITOR [Concomitant]
  10. DYAZIDE [Concomitant]
  11. COENZYME Q10 [Concomitant]
  12. M.V.I. [Concomitant]

REACTIONS (2)
  - NAUSEA [None]
  - VOMITING [None]
